FAERS Safety Report 8327368-8 (Version None)
Quarter: 2012Q2

REPORT INFORMATION
  Report Type: 
  Country: None (occurrence: None)
  Receive Date: 20120502
  Receipt Date: 20120425
  Transmission Date: 20120825
  Serious: No
  Sender: FDA-Public Use
  Company Number: US-BIOGENIDEC-2012BI014495

PATIENT
  Age: 29 Year
  Sex: Female

DRUGS (2)
  1. TYSABRI [Suspect]
     Indication: MULTIPLE SCLEROSIS
     Route: 042
     Dates: start: 20060825, end: 20070709
  2. TYSABRI [Suspect]
     Route: 042
     Dates: start: 20080512, end: 20120312

REACTIONS (1)
  - CENTRAL NERVOUS SYSTEM LESION [None]
